FAERS Safety Report 9717288 (Version 2)
Quarter: 2013Q4

REPORT INFORMATION
  Report Type: Spontaneous
  Country: US (occurrence: US)
  Receive Date: 20131127
  Receipt Date: 20131127
  Transmission Date: 20140711
  Serious: No
  Sender: FDA-Public Use
  Company Number: US-GILEAD-2013-0083960

PATIENT
  Sex: Male

DRUGS (4)
  1. LETAIRIS [Suspect]
     Indication: PRODUCT USED FOR UNKNOWN INDICATION
     Dosage: 5 MG, QD
     Route: 048
     Dates: start: 20130207
  2. VENTAVIS [Suspect]
     Dosage: UNK
     Dates: end: 20131117
  3. ADCIRCA [Concomitant]
  4. COUMADIN                           /00014802/ [Concomitant]

REACTIONS (3)
  - Somnolence [Unknown]
  - Headache [Unknown]
  - Dyspnoea [Unknown]
